FAERS Safety Report 25435109 (Version 1)
Quarter: 2025Q2

REPORT INFORMATION
  Report Type: Spontaneous
  Country: JP (occurrence: JP)
  Receive Date: 20250613
  Receipt Date: 20250613
  Transmission Date: 20250717
  Serious: Yes (Hospitalization, Other)
  Sender: STRIDES
  Company Number: None

PATIENT
  Age: 43 Year
  Sex: Female

DRUGS (4)
  1. TACROLIMUS [Suspect]
     Active Substance: TACROLIMUS
     Indication: Systemic lupus erythematosus
     Route: 065
  2. PREDNISOLONE [Suspect]
     Active Substance: PREDNISOLONE
     Indication: Systemic lupus erythematosus
     Route: 065
  3. MYCOPHENOLIC ACID [Suspect]
     Active Substance: MYCOPHENOLIC ACID
     Indication: Systemic lupus erythematosus
     Route: 065
  4. AMENAMEVIR [Concomitant]
     Active Substance: AMENAMEVIR
     Indication: Herpes zoster
     Route: 065

REACTIONS (7)
  - Ischaemic stroke [Recovered/Resolved]
  - Arterial stenosis [Recovering/Resolving]
  - Cerebral infarction [Recovered/Resolved]
  - Varicella zoster virus infection [Recovered/Resolved]
  - Viral vasculitis [Recovering/Resolving]
  - Infection reactivation [Recovered/Resolved]
  - Off label use [Unknown]
